FAERS Safety Report 5701693-9 (Version None)
Quarter: 2008Q2

REPORT INFORMATION
  Report Type: 
  Country: None (occurrence: None)
  Receive Date: 20080408
  Receipt Date: 20080403
  Transmission Date: 20081010
  Serious: Yes (Life-Threatening, Hospitalization)
  Sender: FDA-Public Use
  Company Number: 2008SP004433

PATIENT
  Age: 49 Year
  Sex: Male
  Weight: 124 kg

DRUGS (14)
  1. TEMODAR [Suspect]
     Indication: OLIGODENDROGLIOMA
     Dosage: 300 MG
     Dates: start: 20080205, end: 20080209
  2. DECADRON [Suspect]
     Indication: DRUG USE FOR UNKNOWN INDICATION
  3. PANTOPRAZOLE SODIUM [Concomitant]
  4. HYDROCODONE BITARTRATE AND ACETAMINOPHEN [Concomitant]
  5. WARFARIN SODIUM [Concomitant]
  6. COLACE [Concomitant]
  7. KEPPRA [Concomitant]
  8. PHENOBARBITAL TAB [Concomitant]
  9. ROPINIROLE HCL [Concomitant]
  10. CRESTOR [Concomitant]
  11. NIASPAN [Concomitant]
  12. CLARINEX [Concomitant]
  13. MAGNESIUM OXIDE [Concomitant]
  14. BACTRIM DS [Concomitant]

REACTIONS (7)
  - CELLULITIS [None]
  - HYPOTENSION [None]
  - MENTAL STATUS CHANGES [None]
  - SEPSIS [None]
  - SKIN DISCOLOURATION [None]
  - SKIN LESION [None]
  - TACHYCARDIA [None]
